FAERS Safety Report 9729261 (Version 1)
Quarter: 2013Q4

REPORT INFORMATION
  Report Type: Spontaneous
  Country: US (occurrence: US)
  Receive Date: 20131204
  Receipt Date: 20131204
  Transmission Date: 20140711
  Serious: Yes (Other)
  Sender: FDA-Public Use
  Company Number: US-BRISTOL-MYERS SQUIBB COMPANY-19862226

PATIENT
  Age: 47 Year
  Sex: Male

DRUGS (2)
  1. ELIQUIS [Suspect]
     Indication: ATRIAL FIBRILLATION
  2. SOTALOL [Suspect]
     Indication: ATRIAL FIBRILLATION
     Dosage: NO OF DOSE:5

REACTIONS (2)
  - Ischaemic stroke [Unknown]
  - Circumstance or information capable of leading to medication error [Unknown]
